FAERS Safety Report 15099593 (Version 1)
Quarter: 2018Q2

REPORT INFORMATION
  Report Type: Spontaneous
  Country: US (occurrence: US)
  Receive Date: 20180611
  Receipt Date: 20180611
  Transmission Date: 20180711
  Serious: Yes (Other)
  Sender: FDA-Public Use
  Company Number: None

PATIENT
  Age: 79 Year
  Sex: Male
  Weight: 115.67 kg

DRUGS (8)
  1. ACEON [Concomitant]
     Active Substance: PERINDOPRIL ERBUMINE
  2. FENOFIBRATE. [Concomitant]
     Active Substance: FENOFIBRATE
  3. PLAVIX [Concomitant]
     Active Substance: CLOPIDOGREL BISULFATE
  4. METFORMIN [Concomitant]
     Active Substance: METFORMIN HYDROCHLORIDE
  5. MULTIVITAMIN [Concomitant]
     Active Substance: VITAMINS
  6. OMEGA 3 [Concomitant]
     Active Substance: OMEGA-3 FATTY ACIDS
  7. JANUVIA [Suspect]
     Active Substance: SITAGLIPTIN PHOSPHATE
     Indication: DIABETES MELLITUS
     Dosage: ?          QUANTITY:1 DF DOSAGE FORM;?
     Route: 048
     Dates: start: 20160211, end: 20161112
  8. AMINO [Concomitant]

REACTIONS (10)
  - Aphonia [None]
  - Throat tightness [None]
  - Nausea [None]
  - Cough [None]
  - Rhinorrhoea [None]
  - Throat cancer [None]
  - Dysphonia [None]
  - Decreased appetite [None]
  - Sneezing [None]
  - Body temperature increased [None]
